FAERS Safety Report 11474290 (Version 1)
Quarter: 2015Q3

REPORT INFORMATION
  Report Type: Spontaneous
  Country: US (occurrence: None)
  Receive Date: 20150902
  Receipt Date: 20150902
  Transmission Date: 20151125
  Serious: Yes (Hospitalization)
  Sender: FDA-Public Use
  Company Number: A-US2014-103557

PATIENT
  Age: 29 Year
  Sex: Female

DRUGS (1)
  1. VELETRI [Suspect]
     Active Substance: EPOPROSTENOL
     Indication: PULMONARY ARTERIAL HYPERTENSION
     Route: 042
     Dates: start: 20110612

REACTIONS (10)
  - Device connection issue [None]
  - Catheter site pain [None]
  - Catheter site discharge [None]
  - Device dislocation [None]
  - Dyspnoea [None]
  - Device leakage [None]
  - Device breakage [None]
  - Device related infection [None]
  - Abscess [None]
  - Flushing [None]

NARRATIVE: CASE EVENT DATE: 20140803
